FAERS Safety Report 17749901 (Version 2)
Quarter: 2020Q2

REPORT INFORMATION
  Report Type: Spontaneous
  Country: IT (occurrence: IT)
  Receive Date: 20200506
  Receipt Date: 20200618
  Transmission Date: 20200714
  Serious: Yes (Other)
  Sender: FDA-Public Use
  Company Number: IT-SA-2020SA101335

PATIENT

DRUGS (3)
  1. RIFADIN [Suspect]
     Active Substance: RIFAMPIN
     Indication: INTERVERTEBRAL DISCITIS
     Dosage: 600 MG, QD
     Route: 048
     Dates: start: 20200107, end: 20200402
  2. ISONIAZID. [Suspect]
     Active Substance: ISONIAZID
     Indication: INTERVERTEBRAL DISCITIS
     Dosage: 400 MG, QD
     Route: 048
     Dates: start: 20200107, end: 20200402
  3. MOXIFLOXACIN HYDROCHLORIDE. [Suspect]
     Active Substance: MOXIFLOXACIN HYDROCHLORIDE
     Indication: INTERVERTEBRAL DISCITIS
     Dosage: 400 MG, QD
     Route: 048
     Dates: start: 20200122, end: 20200402

REACTIONS (5)
  - Skin lesion [Recovering/Resolving]
  - Drug reaction with eosinophilia and systemic symptoms [Recovering/Resolving]
  - Skin exfoliation [Recovering/Resolving]
  - Rash pruritic [Recovering/Resolving]
  - Oedema peripheral [Recovering/Resolving]

NARRATIVE: CASE EVENT DATE: 20200330
